FAERS Safety Report 10902293 (Version 1)
Quarter: 2015Q1

REPORT INFORMATION
  Report Type: Spontaneous
  Country: DE (occurrence: DE)
  Receive Date: 20150310
  Receipt Date: 20150310
  Transmission Date: 20150721
  Serious: Yes (Death, Hospitalization)
  Sender: FDA-Public Use
  Company Number: DE-ABBVIE-13P-062-1104851-00

PATIENT
  Age: 81 Year
  Sex: Male

DRUGS (1)
  1. TRENANTONE [Suspect]
     Active Substance: LEUPROLIDE ACETATE
     Indication: PROSTATE CANCER
     Route: 058
     Dates: start: 20120112, end: 20130318

REACTIONS (3)
  - Metastases to pelvis [Fatal]
  - Metastases to peritoneum [Fatal]
  - Small cell lung cancer metastatic [Fatal]

NARRATIVE: CASE EVENT DATE: 201210
